FAERS Safety Report 9933298 (Version 2)
Quarter: 2014Q1

REPORT INFORMATION
  Report Type: Report from Study
  Country: US (occurrence: US)
  Receive Date: 20140228
  Receipt Date: 20140228
  Transmission Date: 20141002
  Serious: No
  Sender: FDA-Public Use
  Company Number: US-MYLANLABS-2013S1003938

PATIENT
  Age: 33 Year
  Sex: Female

DRUGS (2)
  1. AMNESTEEM CAPSULES [Suspect]
     Indication: ACNE
     Route: 048
     Dates: start: 201301, end: 20130214
  2. ORAL CONTRACEPTIVE NOS [Concomitant]
     Indication: CONTRACEPTION

REACTIONS (4)
  - Vision blurred [Recovered/Resolved]
  - Dizziness [Recovered/Resolved]
  - Headache [Recovered/Resolved]
  - Tinnitus [Recovered/Resolved]
